FAERS Safety Report 23298160 (Version 2)
Quarter: 2024Q3

REPORT INFORMATION
  Report Type: Spontaneous
  Country: US (occurrence: US)
  Receive Date: 20231214
  Receipt Date: 20240829
  Transmission Date: 20241017
  Serious: No
  Sender: BAUSCH AND LOMB
  Company Number: US-BAUSCH-BL-2023-018406

PATIENT
  Age: 65 Year
  Sex: Male

DRUGS (2)
  1. CUPRIMINE [Suspect]
     Active Substance: PENICILLAMINE
     Indication: Hepato-lenticular degeneration
     Route: 065
  2. CUPRIMINE [Suspect]
     Active Substance: PENICILLAMINE
     Route: 065
     Dates: end: 202408

REACTIONS (5)
  - Fear of death [Unknown]
  - Product availability issue [Unknown]
  - Therapy interrupted [Unknown]
  - Insurance issue [Unknown]
  - Treatment noncompliance [Unknown]
